FAERS Safety Report 5770536-X (Version None)
Quarter: 2008Q2

REPORT INFORMATION
  Report Type: 
  Country: None (occurrence: None)
  Receive Date: 20080613
  Receipt Date: 20080506
  Transmission Date: 20081010
  Serious: No
  Sender: FDA-Public Use
  Company Number: US-ABBOTT-08P-163-0450688-00

PATIENT
  Sex: Female
  Weight: 63.56 kg

DRUGS (7)
  1. HUMIRA [Suspect]
     Indication: COLITIS ULCERATIVE
     Dosage: 80MG X 1, THE NEXT DAY 80 MG X 1, THEN 2 WEEKS LATER 80MG X 1, THEN 40MG EVERY OTHER WEEK
     Route: 058
     Dates: start: 20080505
  2. PREDNISONE TAB [Concomitant]
     Indication: COLITIS ULCERATIVE
     Route: 048
     Dates: start: 20080301
  3. LOMOTIL [Concomitant]
     Indication: COLITIS ULCERATIVE
     Route: 048
     Dates: start: 20070501
  4. CALCIUM [Concomitant]
     Indication: MINERAL SUPPLEMENTATION
     Route: 048
     Dates: start: 19880101
  5. IRON [Concomitant]
     Indication: ANAEMIA
     Route: 048
     Dates: start: 20071001
  6. MULTI-VITAMIN [Concomitant]
     Indication: VITAMIN SUPPLEMENTATION
     Route: 048
     Dates: start: 19880101
  7. ASPIRIN [Concomitant]
     Indication: CARDIOVASCULAR EVENT PROPHYLAXIS
     Route: 048
     Dates: start: 19980101

REACTIONS (1)
  - INJECTION SITE IRRITATION [None]
